FAERS Safety Report 7235149-1 (Version None)
Quarter: 2011Q1

REPORT INFORMATION
  Report Type: 
  Country: None (occurrence: None)
  Receive Date: 20110114
  Receipt Date: 20110114
  Transmission Date: 20110831
  Serious: Yes (Life-Threatening)
  Sender: FDA-Public Use
  Company Number: None

PATIENT
  Sex: Male
  Weight: 13.6 kg

DRUGS (3)
  1. VINCRISTINE [Concomitant]
  2. BACTRIM [Concomitant]
  3. PEGASPARAGASE 750 IU/ML ENZON [Suspect]
     Indication: ACUTE LYMPHOCYTIC LEUKAEMIA
     Dosage: 1475 IU ONCE IM
     Route: 030
     Dates: start: 20110104, end: 20110104

REACTIONS (7)
  - BLOOD PRESSURE DECREASED [None]
  - ERYTHEMA [None]
  - HEART RATE INCREASED [None]
  - SWELLING FACE [None]
  - PRURITUS [None]
  - OXYGEN SATURATION DECREASED [None]
  - COUGH [None]
